FAERS Safety Report 6897942-4 (Version None)
Quarter: 2010Q3

REPORT INFORMATION
  Report Type: 
  Country: None (occurrence: None)
  Receive Date: 20100802
  Receipt Date: 20070814
  Transmission Date: 20110219
  Serious: No
  Sender: FDA-Public Use
  Company Number: US-PFIZER INC-2007069830

PATIENT
  Sex: Male
  Weight: 93 kg

DRUGS (14)
  1. LYRICA [Suspect]
     Indication: NERVE INJURY
  2. ZOLPIDEM TARTRATE [Concomitant]
  3. ETODOLAC [Concomitant]
  4. NORTRIPTYLINE [Concomitant]
  5. LAMOTRIGINE [Concomitant]
  6. CITALOPRAM HYDROBROMIDE [Concomitant]
  7. TIZANIDINE HCL [Concomitant]
  8. GLUCOPHAGE [Concomitant]
  9. HYDROCHLOROTHIAZIDE [Concomitant]
  10. VALSARTAN [Concomitant]
  11. ACETYLSALICYLIC ACID SRT [Concomitant]
  12. ACIPHEX [Concomitant]
  13. CELEBREX [Concomitant]
  14. AMITRIPTYLINE HYDROCHLORIDE [Concomitant]

REACTIONS (1)
  - BLISTER [None]
